FAERS Safety Report 16938182 (Version 1)
Quarter: 2019Q4

REPORT INFORMATION
  Report Type: Spontaneous
  Country: US (occurrence: US)
  Receive Date: 20191018
  Receipt Date: 20191018
  Transmission Date: 20200122
  Serious: No
  Sender: FDA-Public Use
  Company Number: US-GLAXOSMITHKLINE-US2019183334

PATIENT
  Age: 76 Year
  Sex: Female

DRUGS (2)
  1. ZANTAC [Suspect]
     Active Substance: RANITIDINE HYDROCHLORIDE
     Indication: PRODUCT USED FOR UNKNOWN INDICATION
     Dosage: UNK
  2. TUMS EX [Suspect]
     Active Substance: CALCIUM CARBONATE
     Indication: DYSPEPSIA
     Dosage: 2 DF, UNK
     Dates: start: 20191005, end: 20191005

REACTIONS (6)
  - Dyspepsia [Not Recovered/Not Resolved]
  - Eructation [Unknown]
  - Breath odour [Not Recovered/Not Resolved]
  - Therapeutic response unexpected [Unknown]
  - Dysgeusia [Unknown]
  - Flatulence [Unknown]

NARRATIVE: CASE EVENT DATE: 20191005
